FAERS Safety Report 7190090-8 (Version None)
Quarter: 2010Q4

REPORT INFORMATION
  Report Type: 
  Country: None (occurrence: None)
  Receive Date: 20101210
  Receipt Date: 20101130
  Transmission Date: 20110411
  Serious: Yes (Other)
  Sender: FDA-Public Use
  Company Number: 2010US004741

PATIENT
  Age: 59 Year
  Sex: Male

DRUGS (6)
  1. PROGRAF [Suspect]
     Indication: LIVER TRANSPLANT
     Dosage: 1MG, BID, ORAL
     Route: 048
     Dates: start: 19990913
  2. CARDUIRA (DOXAZOSIN MESILATE) [Concomitant]
  3. TOPROLOL XL (METOPROLOL SUCCINATE) [Concomitant]
  4. POTASSIUM CHLORIDE [Concomitant]
  5. LACTULOSE [Concomitant]
  6. MS CONTIN [Concomitant]

REACTIONS (1)
  - HEPATIC CIRRHOSIS [None]
